FAERS Safety Report 25770182 (Version 2)
Quarter: 2025Q3

REPORT INFORMATION
  Report Type: Report from Study
  Country: US (occurrence: US)
  Receive Date: 20250907
  Receipt Date: 20250912
  Transmission Date: 20251020
  Serious: Yes (Hospitalization)
  Sender: ABBVIE
  Company Number: US-ABBVIE-6445745

PATIENT
  Sex: Female

DRUGS (1)
  1. VENCLEXTA [Suspect]
     Active Substance: VENETOCLAX
     Indication: Acute myeloid leukaemia
     Dosage: 7 DAYS ON, 21 DAYS OFF EVERY 28 DAY CYCLE
     Route: 048

REACTIONS (6)
  - Pyrexia [Unknown]
  - Hepatitis [Unknown]
  - Platelet count decreased [Unknown]
  - Full blood count decreased [Unknown]
  - Asthenia [Unknown]
  - Malaise [Unknown]

NARRATIVE: CASE EVENT DATE: 20250101
